FAERS Safety Report 7945433-1 (Version None)
Quarter: 2011Q4

REPORT INFORMATION
  Report Type: 
  Country: None (occurrence: None)
  Receive Date: 20111129
  Receipt Date: 20111116
  Transmission Date: 20120403
  Serious: Yes (Other)
  Sender: FDA-Public Use
  Company Number: US-ELI_LILLY_AND_COMPANY-US201111005586

PATIENT
  Sex: Female

DRUGS (2)
  1. HUMALOG [Suspect]
     Dosage: UNK
     Dates: start: 20110801
  2. HUMALOG [Suspect]
     Dosage: UNK
     Dates: start: 20110801

REACTIONS (4)
  - BLINDNESS [None]
  - INAPPROPRIATE SCHEDULE OF DRUG ADMINISTRATION [None]
  - NERVOUSNESS [None]
  - BLOOD GLUCOSE DECREASED [None]
